FAERS Safety Report 15241469 (Version 1)
Quarter: 2018Q3

REPORT INFORMATION
  Report Type: Spontaneous
  Country: US (occurrence: US)
  Receive Date: 20180712
  Receipt Date: 20180712
  Transmission Date: 20181010
  Serious: No
  Sender: FDA-Public Use
  Company Number: None

PATIENT
  Age: 39 Year
  Sex: Female
  Weight: 81 kg

DRUGS (4)
  1. PROBIOTICS [Concomitant]
     Active Substance: PROBIOTICS NOS
  2. INSULIN [Concomitant]
     Active Substance: INSULIN NOS
  3. FLUCONAZOL [Suspect]
     Active Substance: FLUCONAZOLE
     Indication: VULVOVAGINAL MYCOTIC INFECTION
     Dosage: ?          QUANTITY:1 CAPSULE(S);?
     Route: 048
     Dates: start: 20180711, end: 20180711
  4. SIMVISTATIN [Concomitant]
     Active Substance: SIMVASTATIN

REACTIONS (3)
  - Oropharyngeal pain [None]
  - Eye pruritus [None]
  - Enlarged uvula [None]

NARRATIVE: CASE EVENT DATE: 20180711
